FAERS Safety Report 9290993 (Version 1)
Quarter: 2013Q2

REPORT INFORMATION
  Report Type: Spontaneous
  Country: CL (occurrence: None)
  Receive Date: 20130513
  Receipt Date: 20130513
  Transmission Date: 20140414
  Serious: Yes (Hospitalization)
  Sender: FDA-Public Use
  Company Number: FK201301534

PATIENT
  Age: 53 Year
  Sex: Female
  Weight: 72.5 kg

DRUGS (7)
  1. PACLITAXEL [Suspect]
     Indication: BREAST CANCER
     Route: 042
     Dates: start: 20130307, end: 20130307
  2. HIDROCORTISONA (HYDROCORTISONE) [Concomitant]
  3. GRANISETRON (GRANISETRON) [Concomitant]
  4. ONDASETRON (ONDASETRON) [Concomitant]
  5. DEXAMETASONA (DEXAMETHASONE) [Concomitant]
  6. CLORFENAMINA (CHLORPHENAMINE MALEATE) [Concomitant]
  7. RANITIDINE (RANITIDINE) [Concomitant]

REACTIONS (6)
  - Pancytopenia [None]
  - Alopecia [None]
  - Aplasia [None]
  - Neutropenia [None]
  - Nausea [None]
  - Vomiting [None]
